FAERS Safety Report 13410696 (Version 5)
Quarter: 2021Q3

REPORT INFORMATION
  Report Type: Spontaneous
  Country: BR (occurrence: BR)
  Receive Date: 20170406
  Receipt Date: 20210802
  Transmission Date: 20211014
  Serious: Yes (Life-Threatening, Hospitalization, Other)
  Sender: FDA-Public Use
  Company Number: BR-PFIZER INC-2017027934

PATIENT
  Age: 33 Year
  Sex: Male

DRUGS (8)
  1. GEODON [Suspect]
     Active Substance: ZIPRASIDONE HYDROCHLORIDE\ZIPRASIDONE MESYLATE
     Indication: OBSESSIVE-COMPULSIVE DISORDER
  2. RISS [RISPERIDONE] [Concomitant]
  3. ESCITALOPRAM [Concomitant]
     Active Substance: ESCITALOPRAM OXALATE
  4. GEODON [Suspect]
     Active Substance: ZIPRASIDONE HYDROCHLORIDE\ZIPRASIDONE MESYLATE
     Indication: BIPOLAR DISORDER
     Dosage: UNK UNK, 2X/DAY
     Route: 048
     Dates: start: 2012
  5. GEODON [Suspect]
     Active Substance: ZIPRASIDONE HYDROCHLORIDE\ZIPRASIDONE MESYLATE
     Indication: SCHIZOPHRENIA
     Dosage: 80 MG, DAILY (40 MG TWICE A DAY OR 1 TABLET OF 80 MG)
  6. TOPIRAMATE. [Concomitant]
     Active Substance: TOPIRAMATE
  7. TRAZODONE [Concomitant]
     Active Substance: TRAZODONE HYDROCHLORIDE
  8. OLANZAPINE. [Concomitant]
     Active Substance: OLANZAPINE

REACTIONS (9)
  - Depression [Unknown]
  - Agitation [Unknown]
  - Restlessness [Unknown]
  - Hyperphagia [Unknown]
  - Suicide attempt [Unknown]
  - Anxiety [Unknown]
  - Nervousness [Unknown]
  - Insomnia [Unknown]
  - Psychiatric decompensation [Unknown]
